FAERS Safety Report 25538961 (Version 1)
Quarter: 2025Q3

REPORT INFORMATION
  Report Type: Spontaneous
  Country: US (occurrence: None)
  Receive Date: 20250709
  Receipt Date: 20250709
  Transmission Date: 20251021
  Serious: Yes (Other)
  Sender: FDA-CTU
  Company Number: None

PATIENT
  Sex: Female

DRUGS (16)
  1. PAROXETINE [Suspect]
     Active Substance: PAROXETINE
     Indication: Product used for unknown indication
     Dosage: ?AT BEDTIME ORAL
     Route: 048
  2. SERTRALINE [Suspect]
     Active Substance: SERTRALINE HYDROCHLORIDE
     Indication: Heart rate increased
     Dosage: ?1 TABLET AT BEDTIME ORAL
     Route: 048
  3. INSULIN GLARGINE [Concomitant]
     Active Substance: INSULIN GLARGINE
  4. INSULIN LISPRO [Concomitant]
     Active Substance: INSULIN LISPRO
  5. OZEMPIC [Concomitant]
     Active Substance: SEMAGLUTIDE
  6. VITAMIN B12 [Concomitant]
     Active Substance: CYANOCOBALAMIN
  7. VITAMIN D [Concomitant]
     Active Substance: VITAMIN D NOS
  8. BIOTIN [Concomitant]
     Active Substance: BIOTIN
  9. STEGLATRO [Concomitant]
     Active Substance: ERTUGLIFLOZIN PIDOLATE
  10. LEVOTHYROXINE [Concomitant]
     Active Substance: LEVOTHYROXINE
  11. LOSARTAN [Concomitant]
     Active Substance: LOSARTAN
  12. AMLODIPINE [Concomitant]
     Active Substance: AMLODIPINE BESYLATE
  13. LABETALOL [Concomitant]
     Active Substance: LABETALOL
  14. ASPIRIN [Concomitant]
     Active Substance: ASPIRIN
  15. ACIDOPHILUS [Concomitant]
     Active Substance: LACTOBACILLUS ACIDOPHILUS
  16. MAGNESIUM CITRATE [Concomitant]
     Active Substance: MAGNESIUM CITRATE

REACTIONS (11)
  - Dizziness [None]
  - Fall [None]
  - Cardiac failure congestive [None]
  - Diabetes mellitus [None]
  - Blood pressure increased [None]
  - Thyroid disorder [None]
  - Libido decreased [None]
  - Anhedonia [None]
  - Anger [None]
  - Weight decreased [None]
  - Therapy cessation [None]
